FAERS Safety Report 4376840-4 (Version None)
Quarter: 2004Q2

REPORT INFORMATION
  Report Type: 
  Country: None (occurrence: None)
  Receive Date: 20040609
  Receipt Date: 20040323
  Transmission Date: 20050107
  Serious: Yes (Hospitalization, Other)
  Sender: FDA-Public Use
  Company Number: US-SHR-03-015488

PATIENT
  Age: 41 Year
  Sex: Female
  Weight: 67.6 kg

DRUGS (2)
  1. YASMIN [Suspect]
     Indication: CANCER PAIN
     Dosage: 1 TAB(S), 1X/DAY; ORAL
     Route: 048
     Dates: start: 20030301, end: 20030901
  2. MULTIVITAMINS (RETINOL, PANTHENOL) [Concomitant]

REACTIONS (3)
  - DEEP VEIN THROMBOSIS [None]
  - PULMONARY EMBOLISM [None]
  - PULMONARY HYPERTENSION [None]
